FAERS Safety Report 18964105 (Version 1)
Quarter: 2021Q1

REPORT INFORMATION
  Report Type: Spontaneous
  Country: GB (occurrence: GB)
  Receive Date: 20210303
  Receipt Date: 20210303
  Transmission Date: 20210420
  Serious: Yes (Other)
  Sender: FDA-Public Use
  Company Number: GB-TEVA-2021-GB-1883331

PATIENT
  Age: 67 Year
  Sex: Male
  Weight: 86 kg

DRUGS (5)
  1. ATORVASTATIN [Suspect]
     Active Substance: ATORVASTATIN
     Indication: CORONAVIRUS INFECTION
     Dosage: 20 MG
     Dates: start: 20201215, end: 20210115
  2. EPILIM [Concomitant]
     Active Substance: VALPROATE SODIUM
     Indication: SCHIZOAFFECTIVE DISORDER BIPOLAR TYPE
  3. THIAMINE. [Concomitant]
     Active Substance: THIAMINE
     Indication: SCHIZOAFFECTIVE DISORDER BIPOLAR TYPE
  4. VITAMIN D3 [Concomitant]
     Active Substance: CHOLECALCIFEROL
     Indication: IMMUNOLOGY TEST
  5. PHENERGAN [Concomitant]
     Active Substance: PROMETHAZINE HYDROCHLORIDE
     Indication: SEDATION

REACTIONS (2)
  - Palpitations [Recovered/Resolved]
  - Palpitations [Unknown]

NARRATIVE: CASE EVENT DATE: 20201215
